FAERS Safety Report 5333711-4 (Version None)
Quarter: 2007Q2

REPORT INFORMATION
  Report Type: 
  Country: None (occurrence: None)
  Receive Date: 20070524
  Receipt Date: 20070514
  Transmission Date: 20071010
  Serious: Yes (Life-Threatening)
  Sender: FDA-Public Use
  Company Number: B0471474A

PATIENT
  Age: 3 Day
  Sex: Female
  Weight: 0.6 kg

DRUGS (4)
  1. SALBUMOL [Suspect]
     Indication: DRUG USE FOR UNKNOWN INDICATION
     Dosage: 1.4MG SINGLE DOSE
     Route: 042
     Dates: start: 20070321, end: 20070321
  2. KAYEXALATE [Concomitant]
     Dates: start: 20070321
  3. INSULINE [Concomitant]
     Dates: start: 20070321
  4. BICARBONATE [Concomitant]
     Dates: start: 20070321

REACTIONS (4)
  - HYPERKALAEMIA [None]
  - HYPERNATRAEMIA [None]
  - OVERDOSE [None]
  - TACHYCARDIA [None]
